FAERS Safety Report 11600647 (Version 1)
Quarter: 2015Q4

REPORT INFORMATION
  Report Type: Spontaneous
  Country: US (occurrence: US)
  Receive Date: 20151006
  Receipt Date: 20151006
  Transmission Date: 20160304
  Serious: No
  Sender: FDA-Public Use
  Company Number: US-AMGEN-USASP2014102084

PATIENT
  Age: 63 Year
  Sex: Female

DRUGS (1)
  1. PROLIA [Suspect]
     Active Substance: DENOSUMAB
     Indication: PRODUCT USED FOR UNKNOWN INDICATION
     Dosage: UNK
     Route: 065
     Dates: start: 201401

REACTIONS (8)
  - Rash pruritic [Unknown]
  - Burning sensation [Unknown]
  - Contusion [Unknown]
  - Blister [Unknown]
  - Rash [Unknown]
  - Exfoliative rash [Unknown]
  - Dry skin [Unknown]
  - Urticaria [Unknown]

NARRATIVE: CASE EVENT DATE: 201410
